FAERS Safety Report 13178664 (Version 1)
Quarter: 2017Q1

REPORT INFORMATION
  Report Type: Other
  Country: GB (occurrence: GB)
  Receive Date: 20170202
  Receipt Date: 20170202
  Transmission Date: 20170428
  Serious: Yes (Hospitalization, Other)
  Sender: FDA-Public Use
  Company Number: GB-AJANTA PHARMA USA INC.-1062644

PATIENT
  Age: 47 Year
  Sex: Male

DRUGS (4)
  1. VENLAFAXINE [Suspect]
     Active Substance: VENLAFAXINE HYDROCHLORIDE
  2. DIAZEPAM. [Suspect]
     Active Substance: DIAZEPAM
  3. OLANZAPINE (ANDA 206711) [Suspect]
     Active Substance: OLANZAPINE
     Indication: PRODUCT USED FOR UNKNOWN INDICATION
  4. ZOPICLONE [Suspect]
     Active Substance: ZOPICLONE

REACTIONS (10)
  - Blood creatine phosphokinase increased [Unknown]
  - Body temperature increased [Unknown]
  - Hyperkalaemia [Unknown]
  - Loss of consciousness [Recovered/Resolved]
  - Tachycardia [Unknown]
  - Electrocardiogram QT prolonged [Unknown]
  - Acidosis [Unknown]
  - Overdose [Recovered/Resolved]
  - Hypotension [Unknown]
  - Multiple organ dysfunction syndrome [Unknown]

NARRATIVE: CASE EVENT DATE: 20160912
